FAERS Safety Report 7135699-2 (Version None)
Quarter: 2010Q4

REPORT INFORMATION
  Report Type: 
  Country: None (occurrence: None)
  Receive Date: 20101203
  Receipt Date: 20101123
  Transmission Date: 20110411
  Serious: Yes (Hospitalization, Disabling)
  Sender: FDA-Public Use
  Company Number: DE-GENENTECH-304482

PATIENT
  Sex: Male
  Weight: 83 kg

DRUGS (18)
  1. RITUXIMAB [Suspect]
     Indication: NON-HODGKIN'S LYMPHOMA
     Dosage: 773 MG, UNK
     Route: 042
     Dates: start: 20090813
  2. RITUXIMAB [Suspect]
     Dosage: UNK
     Route: 042
     Dates: start: 20090901
  3. RITUXIMAB [Suspect]
     Dosage: UNK
     Route: 042
     Dates: start: 20091012, end: 20091014
  4. RITUXIMAB [Suspect]
     Dosage: UNK
     Route: 042
     Dates: start: 20091111
  5. RITUXIMAB [Suspect]
     Dosage: UNK
     Route: 042
     Dates: start: 20091209
  6. RITUXIMAB [Suspect]
     Dosage: UNK
     Route: 042
     Dates: start: 20100112
  7. RITUXIMAB [Suspect]
     Dosage: UNK
     Route: 042
     Dates: start: 20100212
  8. BENDAMUSTINE [Suspect]
     Indication: NON-HODGKIN'S LYMPHOMA
     Dosage: 185 MG, Q4W
     Route: 042
     Dates: start: 20090814
  9. BENDAMUSTINE [Suspect]
     Dosage: UNK
     Route: 042
     Dates: start: 20090901
  10. BENDAMUSTINE [Suspect]
     Dosage: UNK
     Route: 042
     Dates: start: 20091012, end: 20091014
  11. BENDAMUSTINE [Suspect]
     Dosage: UNK
     Route: 042
     Dates: start: 20091111
  12. BENDAMUSTINE [Suspect]
     Dosage: UNK
     Route: 042
     Dates: start: 20091209
  13. BENDAMUSTINE [Suspect]
     Dosage: UNK
     Route: 042
     Dates: start: 20100112, end: 20100113
  14. LEVOTHYROXINE SODIUM [Concomitant]
     Indication: PRODUCT USED FOR UNKNOWN INDICATION
     Dosage: 125 A?G, UNK
  15. PANTOPRAZOLE SODIUM [Concomitant]
     Indication: PRODUCT USED FOR UNKNOWN INDICATION
     Dosage: 40 MG, UNK
  16. DIMETINDENMALEAT [Concomitant]
     Indication: PRODUCT USED FOR UNKNOWN INDICATION
     Dosage: UNK
     Dates: start: 20090824, end: 20090917
  17. CAPTOPRIL [Concomitant]
     Indication: PRODUCT USED FOR UNKNOWN INDICATION
     Dosage: UNK
  18. CALCIUM [Concomitant]
     Indication: PRODUCT USED FOR UNKNOWN INDICATION
     Dosage: UNK
     Dates: start: 20090814

REACTIONS (3)
  - LEUKOPENIA [None]
  - PROGRESSIVE MULTIFOCAL LEUKOENCEPHALOPATHY [None]
  - THROMBOCYTOPENIA [None]
